FAERS Safety Report 8217263-7 (Version None)
Quarter: 2012Q1

REPORT INFORMATION
  Report Type: 
  Country: None (occurrence: None)
  Receive Date: 20120319
  Receipt Date: 20120313
  Transmission Date: 20120608
  Serious: No
  Sender: FDA-Public Use
  Company Number: US-PFIZER INC-2012062158

PATIENT
  Sex: Female
  Weight: 90.703 kg

DRUGS (16)
  1. LASIX [Concomitant]
     Dosage: 20 MG, 2X/DAY
  2. EFFEXOR XR [Suspect]
     Indication: DEPRESSION
     Dosage: 75 MG, 3X/DAY
     Route: 048
     Dates: start: 20110301
  3. NITROGLYCERIN [Concomitant]
     Dosage: 2.5 MG, 2X/DAY
  4. PLAVIX [Concomitant]
     Indication: CARDIAC DISORDER
     Dosage: 75 MG, 1X/DAY
  5. LYRICA [Concomitant]
     Indication: FIBROMYALGIA
     Dosage: 100 MG, 3X/DAY
  6. ACETYLSALICYLIC ACID [Concomitant]
     Dosage: UNK
  7. HYDROCODONE BITARTRATE AND ACETAMINOPHEN [Concomitant]
     Dosage: 500 MG, AS NEEDED
  8. SIMVASTATIN [Concomitant]
     Dosage: 80 MG, 1X/DAY
  9. MAGNESIUM [Concomitant]
     Dosage: 250 MG, 1X/DAY
  10. BIOTIN [Concomitant]
     Dosage: 1000 UG, 1X/DAY
  11. LECITHIN [Concomitant]
     Dosage: 400 MG, 1X/DAY
  12. FOLIC ACID [Concomitant]
     Dosage: 800 MG, DAILY
  13. MULTI-VITAMINS [Concomitant]
     Dosage: UNK
  14. LYRICA [Concomitant]
     Dosage: 100 MG, 2X/DAY
  15. L-CARNITINE [Concomitant]
     Dosage: UNK
  16. COQ-10 [Concomitant]
     Dosage: UNK

REACTIONS (1)
  - WEIGHT INCREASED [None]
